FAERS Safety Report 7707837-1 (Version None)
Quarter: 2011Q3

REPORT INFORMATION
  Report Type: 
  Country: None (occurrence: None)
  Receive Date: 20110824
  Receipt Date: 20110812
  Transmission Date: 20111222
  Serious: Yes (Other)
  Sender: FDA-Public Use
  Company Number: US-BAYER-2011-072852

PATIENT
  Age: 85 Year
  Sex: Male
  Weight: 122 kg

DRUGS (6)
  1. ANTIHYPERTENSIVES [Concomitant]
  2. ARTHRITIS MEDICATION [Concomitant]
  3. ACETYLSALICYLIC ACID [Concomitant]
  4. TRAMADOL HCL [Concomitant]
  5. MAGNESIUM HYDROXIDE TAB [Suspect]
     Indication: CONSTIPATION
     Dosage: 4 DF, PRN
     Route: 048
     Dates: start: 20110804, end: 20110807
  6. ZOCOR [Concomitant]

REACTIONS (4)
  - HALLUCINATION [None]
  - NAUSEA [None]
  - CONSTIPATION [None]
  - HEADACHE [None]
